FAERS Safety Report 9710366 (Version 2)
Quarter: 2013Q4

REPORT INFORMATION
  Report Type: Spontaneous
  Country: US (occurrence: US)
  Receive Date: 20131126
  Receipt Date: 20131126
  Transmission Date: 20140711
  Serious: No
  Sender: FDA-Public Use
  Company Number: US-BRISTOL-MYERS SQUIBB COMPANY-18827626

PATIENT
  Age: 72 Year
  Sex: Male
  Weight: 81.63 kg

DRUGS (10)
  1. BYDUREON [Suspect]
     Indication: TYPE 2 DIABETES MELLITUS
     Route: 058
     Dates: start: 20130323
  2. BYETTA [Suspect]
  3. GLIPIZIDE [Suspect]
     Dosage: 1DF = 5MG PO QAM, 10MG PO QPM CHANGED TO BID,15MG TWICE A DAY
     Route: 048
  4. AMLODIPINE [Concomitant]
  5. PREDNISONE [Concomitant]
  6. LOVASTATIN [Concomitant]
  7. COMBIGAN [Concomitant]
     Dosage: FORMULATION-COMBIGAN 0.2%
  8. VIGAMOX [Concomitant]
     Route: 047
  9. LUMIGAN [Concomitant]
  10. LORATADINE [Concomitant]

REACTIONS (3)
  - Injection site reaction [Recovered/Resolved]
  - Blood glucose decreased [Recovered/Resolved]
  - Vision blurred [Unknown]
